FAERS Safety Report 24954780 (Version 1)
Quarter: 2025Q1

REPORT INFORMATION
  Report Type: Spontaneous
  Country: US (occurrence: None)
  Receive Date: 20250210
  Receipt Date: 20250210
  Transmission Date: 20250408
  Serious: No
  Sender: FDA-CTU
  Company Number: None

PATIENT
  Age: 33 Year
  Sex: Female

DRUGS (1)
  1. RINVOQ [Suspect]
     Active Substance: UPADACITINIB
     Indication: Colitis
     Dosage: FREQUENCY : MONTHLY;?TAKE 1 TABLET BY MOUTH DAILY FOR 4 WEEKS AS DIRECTED.?
     Route: 058
     Dates: start: 202412

REACTIONS (2)
  - Rectal abscess [None]
  - Intentional dose omission [None]
